FAERS Safety Report 18579384 (Version 1)
Quarter: 2020Q4

REPORT INFORMATION
  Report Type: Spontaneous
  Country: JP (occurrence: JP)
  Receive Date: 20201204
  Receipt Date: 20201204
  Transmission Date: 20210114
  Serious: Yes (Other)
  Sender: FDA-Public Use
  Company Number: JP-ORION CORPORATION ORION PHARMA-ENTC2020-0305

PATIENT
  Age: 65 Year
  Sex: Male

DRUGS (1)
  1. STALEVO [Suspect]
     Active Substance: CARBIDOPA\ENTACAPONE\LEVODOPA
     Indication: PARKINSON^S DISEASE
     Dosage: LEVODOPA 100MG-CARBIDOPA 10.8 MG-ENTACAPONE 100 MG
     Route: 048

REACTIONS (3)
  - Parkinson^s disease [Unknown]
  - Product use complaint [Unknown]
  - Wrong technique in product usage process [Unknown]
